FAERS Safety Report 15714629 (Version 2)
Quarter: 2019Q1

REPORT INFORMATION
  Report Type: Spontaneous
  Country: AU (occurrence: AU)
  Receive Date: 20181212
  Receipt Date: 20190116
  Transmission Date: 20190417
  Serious: Yes (Hospitalization, Other)
  Sender: FDA-Public Use
  Company Number: US-ALKEM LABORATORIES LIMITED-US-ALKEM-2018-10698

PATIENT
  Age: 46 Year
  Sex: Female

DRUGS (3)
  1. PROPRANOLOL [Concomitant]
     Active Substance: PROPRANOLOL HYDROCHLORIDE
     Indication: HYPERTENSION
     Dosage: 50 MG, QD
     Route: 065
  2. HYDRALAZINE HYDROCHLORIDE. [Suspect]
     Active Substance: HYDRALAZINE HYDROCHLORIDE
     Indication: HYPERTENSION
     Dosage: 150 MG, QD
     Route: 065
     Dates: end: 198005
  3. CYCLOPENTHIAZINE [Concomitant]
     Indication: HYPERTENSION
     Dosage: 0.5 MG, QD
     Route: 065

REACTIONS (3)
  - Glomerulonephritis proliferative [Recovering/Resolving]
  - Lupus-like syndrome [Recovering/Resolving]
  - Lupus nephritis [Recovering/Resolving]

NARRATIVE: CASE EVENT DATE: 198003
